FAERS Safety Report 5574579-0 (Version None)
Quarter: 2007Q4

REPORT INFORMATION
  Report Type: 
  Country: None (occurrence: None)
  Receive Date: 20071227
  Receipt Date: 20071219
  Transmission Date: 20080405
  Serious: Yes (Disabling)
  Sender: FDA-Public Use
  Company Number: US-ASTRAZENECA-2007UW27581

PATIENT
  Age: 2157 Day
  Sex: Male
  Weight: 21.8 kg

DRUGS (5)
  1. PULMICORT RESPULES [Suspect]
     Indication: ASTHMA
     Route: 055
     Dates: start: 20071130, end: 20071202
  2. PULMICORT RESPULES [Suspect]
     Route: 055
  3. ORAPRED [Concomitant]
     Indication: ASTHMA
  4. ORAPRED [Concomitant]
  5. XOPENEX [Concomitant]
     Indication: ASTHMA

REACTIONS (5)
  - ANGIOEDEMA [None]
  - DYSPNOEA [None]
  - FLUSHING [None]
  - PANIC REACTION [None]
  - RESPIRATORY DISTRESS [None]
